FAERS Safety Report 6104809-8 (Version None)
Quarter: 2009Q1

REPORT INFORMATION
  Report Type: 
  Country: None (occurrence: None)
  Receive Date: 20090306
  Receipt Date: 20090227
  Transmission Date: 20090719
  Serious: Yes (Other)
  Sender: FDA-Public Use
  Company Number: CA-ASTRAZENECA-2009UW05723

PATIENT
  Sex: Male

DRUGS (10)
  1. SEROQUEL [Suspect]
     Indication: DEPRESSION
     Route: 048
     Dates: start: 20080701, end: 20081101
  2. SEROQUEL XR [Suspect]
     Indication: DEPRESSION
     Route: 048
  3. PMS HYDROMORPHONE [Concomitant]
  4. APO ACETAMINOPHEN [Concomitant]
  5. HYDROMORPHINE-CONTIN [Concomitant]
  6. SANDOZ QUETIAPINE [Concomitant]
  7. SENNOSIDE [Concomitant]
  8. DOCUSATE SODIUM [Concomitant]
  9. RATIO TEMAZEPAM [Concomitant]
  10. PMS METHYLPHENIDATE [Concomitant]

REACTIONS (3)
  - HYPOVENTILATION [None]
  - METABOLIC ALKALOSIS [None]
  - TOOTH LOSS [None]
